FAERS Safety Report 4615486-7 (Version None)
Quarter: 2005Q1

REPORT INFORMATION
  Report Type: 
  Country: None (occurrence: None)
  Receive Date: 20050317
  Receipt Date: 20050304
  Transmission Date: 20050727
  Serious: Yes (Hospitalization)
  Sender: FDA-Public Use
  Company Number: 2005042103

PATIENT
  Age: 1 Day
  Sex: Female
  Weight: 1.8 kg

DRUGS (6)
  1. VIRACEPT [Suspect]
     Indication: HIV INFECTION
     Dosage: ORAL
     Route: 048
     Dates: end: 20041208
  2. AMOXICILLIN TRIHYDRATE [Suspect]
     Indication: ILL-DEFINED DISORDER
     Dosage: INTRAVENOUS
     Route: 042
     Dates: start: 20041209, end: 20041210
  3. DIDANOSINE [Suspect]
     Indication: HIV INFECTION
     Dosage: ORAL
     Route: 048
     Dates: end: 20041208
  4. ZIDOVUDINE [Suspect]
     Indication: HIV INFECTION
  5. TRANQUITAL (CRATAEGUS, VALERIANA OFFICINALIS ROOT) [Suspect]
     Indication: ILL-DEFINED DISORDER
     Dates: end: 20041208
  6. CEFOTAXIME SODIUM [Concomitant]

REACTIONS (10)
  - BLOOD BILIRUBIN INCREASED [None]
  - BLOOD LACTATE DEHYDROGENASE INCREASED [None]
  - C-REACTIVE PROTEIN INCREASED [None]
  - CAESAREAN SECTION [None]
  - DRUG EXPOSURE DURING PREGNANCY [None]
  - HAEMOPHILUS INFECTION [None]
  - NEONATAL DISORDER [None]
  - NEONATAL RESPIRATORY DISTRESS SYNDROME [None]
  - PREMATURE BABY [None]
  - TREMOR NEONATAL [None]
